FAERS Safety Report 11420919 (Version 3)
Quarter: 2015Q3

REPORT INFORMATION
  Report Type: Spontaneous
  Country: US (occurrence: US)
  Receive Date: 20150826
  Receipt Date: 20150907
  Transmission Date: 20151125
  Serious: Yes (Other)
  Sender: FDA-Public Use
  Company Number: US-PFIZER INC-2015235364

PATIENT
  Age: 86 Year
  Sex: Male

DRUGS (3)
  1. CENTRUM SILVER ADULTS 50+ [Concomitant]
     Active Substance: VITAMINS
     Route: 065
  2. METOPROLOL TARTRATE. [Suspect]
     Active Substance: METOPROLOL TARTRATE
     Indication: ATRIAL FIBRILLATION
     Dosage: 25 UNITS (NOS), 2X/DAY
     Route: 048
     Dates: start: 20150607
  3. ELIQUIS [Suspect]
     Active Substance: APIXABAN
     Indication: CEREBROVASCULAR ACCIDENT PROPHYLAXIS
     Dosage: 5 MG, 2X/DAY
     Route: 048
     Dates: start: 20150607

REACTIONS (6)
  - Atrial fibrillation [Unknown]
  - Peripheral swelling [Unknown]
  - Joint swelling [Unknown]
  - Skin exfoliation [Unknown]
  - Pollakiuria [Unknown]
  - Pericardial effusion [Unknown]

NARRATIVE: CASE EVENT DATE: 20150608
